FAERS Safety Report 7335244-2 (Version None)
Quarter: 2011Q1

REPORT INFORMATION
  Report Type: 
  Country: None (occurrence: None)
  Receive Date: 20110307
  Receipt Date: 20110228
  Transmission Date: 20110831
  Serious: No
  Sender: FDA-Public Use
  Company Number: US-PFIZER INC-2010140950

PATIENT
  Sex: Female
  Weight: 59 kg

DRUGS (4)
  1. SOMAVERT [Suspect]
     Dosage: 20 MG, 1X/DAY
     Route: 058
     Dates: start: 20100717
  2. PROPRANOLOL [Concomitant]
     Dosage: 5 MG, UNK
  3. CYTOMEL [Concomitant]
     Dosage: 5 MG, 2X/DAY
  4. SOMAVERT [Suspect]
     Indication: PITUITARY TUMOUR
     Dosage: 40 MG, DAILY
     Route: 030
     Dates: start: 20100716, end: 20100716

REACTIONS (1)
  - NO ADVERSE EVENT [None]
